FAERS Safety Report 7795102-6 (Version None)
Quarter: 2011Q4

REPORT INFORMATION
  Report Type: 
  Country: None (occurrence: None)
  Receive Date: 20111004
  Receipt Date: 20110921
  Transmission Date: 20120403
  Serious: Yes (Death, Life-Threatening, Hospitalization, Other)
  Sender: FDA-Public Use
  Company Number: JP-AMGEN-US403104

PATIENT
  Age: 66 Year
  Sex: Female
  Weight: 60 kg

DRUGS (12)
  1. FOSAMAX [Concomitant]
     Dosage: 35 MG, QWK
     Route: 048
     Dates: start: 20080526
  2. RHEUMATREX [Suspect]
     Dosage: 2 MG, 4 TIMES/WK
     Route: 048
     Dates: start: 20080501, end: 20100301
  3. AMLODIPINE [Concomitant]
     Dosage: 5 MG, QD
     Route: 048
     Dates: start: 20080922
  4. LOSARTAN POTASSIUM [Concomitant]
     Dosage: 25 MG, QD
     Route: 048
     Dates: start: 20080526
  5. DEXAMETHASONE [Concomitant]
     Dosage: 2.5 MG, QWK
     Route: 042
     Dates: start: 20100114
  6. MUCOSTA [Concomitant]
     Dosage: 200 MG, QD
     Route: 048
     Dates: start: 20080526
  7. SUNRYTHM [Concomitant]
     Dosage: 150 MG, QD
     Route: 048
     Dates: start: 20090323
  8. PREDNISOLONE [Suspect]
     Dosage: 5 MG, QD
     Route: 048
     Dates: start: 20051201, end: 20100318
  9. HERBAL EXTRACT NOS [Concomitant]
     Dosage: 7.5 MG, QD
     Route: 048
     Dates: start: 20080526
  10. OMEPRAZOLE [Concomitant]
     Dosage: 20 MG, QD
     Route: 048
     Dates: start: 20080525
  11. ENBREL [Suspect]
     Indication: RHEUMATOID ARTHRITIS
     Dosage: 25 MG, QWK
     Route: 058
     Dates: start: 20100128, end: 20100318
  12. LOXOPROFEN SODIUM [Concomitant]
     Dosage: 120 MG, QD
     Route: 048
     Dates: start: 20080526

REACTIONS (5)
  - SEPSIS [None]
  - PLATELET COUNT DECREASED [None]
  - PNEUMONIA [None]
  - OROPHARYNGEAL PAIN [None]
  - RESPIRATORY FAILURE [None]
